FAERS Safety Report 22248616 (Version 1)
Quarter: 2023Q2

REPORT INFORMATION
  Report Type: Spontaneous
  Country: US (occurrence: US)
  Receive Date: 20230425
  Receipt Date: 20230425
  Transmission Date: 20230721
  Serious: Yes (Hospitalization)
  Sender: FDA-Public Use
  Company Number: US-BEH-2023157679

PATIENT
  Age: 2 Year
  Sex: Male

DRUGS (11)
  1. IDELVION [Suspect]
     Active Substance: COAGULATION FACTOR IX RECOMBINANT HUMAN
     Indication: Factor IX deficiency
     Dosage: 1494-1660 UNITS, QOW
     Route: 042
     Dates: start: 202011
  2. IDELVION [Suspect]
     Active Substance: COAGULATION FACTOR IX RECOMBINANT HUMAN
     Indication: Factor IX deficiency
     Dosage: 1494-1660 UNITS, QOW
     Route: 042
     Dates: start: 202011
  3. IDELVION [Suspect]
     Active Substance: COAGULATION FACTOR IX RECOMBINANT HUMAN
     Indication: Prophylaxis
     Dosage: 1494-1660 UNITS, PRN
     Route: 042
     Dates: start: 202011
  4. IDELVION [Suspect]
     Active Substance: COAGULATION FACTOR IX RECOMBINANT HUMAN
     Indication: Prophylaxis
     Dosage: 1494-1660 UNITS, PRN
     Route: 042
     Dates: start: 202011
  5. IDELVION [Suspect]
     Active Substance: COAGULATION FACTOR IX RECOMBINANT HUMAN
     Indication: Haemorrhage
     Dosage: 830-996 UNITS, PRN
     Route: 042
     Dates: start: 202011
  6. IDELVION [Suspect]
     Active Substance: COAGULATION FACTOR IX RECOMBINANT HUMAN
     Indication: Haemorrhage
     Dosage: 830-996 UNITS, PRN
     Route: 042
     Dates: start: 202011
  7. IDELVION [Suspect]
     Active Substance: COAGULATION FACTOR IX RECOMBINANT HUMAN
     Indication: Haemorrhage
     Dosage: 1 DOSAGE FORM, TOT
     Route: 042
     Dates: start: 202304
  8. IDELVION [Suspect]
     Active Substance: COAGULATION FACTOR IX RECOMBINANT HUMAN
     Indication: Haemorrhage
     Dosage: 1 DOSAGE FORM, TOT
     Route: 042
     Dates: start: 202304
  9. IDELVION [Suspect]
     Active Substance: COAGULATION FACTOR IX RECOMBINANT HUMAN
     Indication: Haemarthrosis
     Dosage: 2 DOSAGE FORM, TOT
     Route: 042
     Dates: start: 202304
  10. IDELVION [Suspect]
     Active Substance: COAGULATION FACTOR IX RECOMBINANT HUMAN
     Indication: Haemarthrosis
     Dosage: 2 DOSAGE FORM, TOT
     Route: 042
     Dates: start: 202304
  11. AMINOCAPROIC ACID [Concomitant]
     Active Substance: AMINOCAPROIC ACID
     Indication: Haemorrhage
     Dosage: 3.3 MILLILITER, EVERY 6 HOURS PRN
     Route: 048

REACTIONS (1)
  - Head injury [Unknown]

NARRATIVE: CASE EVENT DATE: 20230401
